FAERS Safety Report 4975844-8 (Version None)
Quarter: 2006Q2

REPORT INFORMATION
  Report Type: 
  Country: None (occurrence: None)
  Receive Date: 20060411
  Receipt Date: 20060329
  Transmission Date: 20061013
  Serious: Yes (Life-Threatening, Hospitalization, Other)
  Sender: FDA-Public Use
  Company Number: 13623

PATIENT
  Age: 65 Year
  Sex: Male
  Weight: 61 kg

DRUGS (10)
  1. METHOTREXATE [Suspect]
     Indication: LYMPHOMA
     Dosage: 3760 MG DAILY OTHER
     Route: 050
     Dates: start: 20060223, end: 20060224
  2. DECADRON [Concomitant]
  3. ZOFRAN [Concomitant]
  4. LIPITOR [Concomitant]
  5. URSO [Concomitant]
  6. TAKEPRON [Concomitant]
  7. PURSENNID [Concomitant]
  8. MYSTAN [Concomitant]
  9. DIAMOX [Concomitant]
  10. OMNISCAN [Concomitant]

REACTIONS (14)
  - ANAEMIA [None]
  - BLOOD ALKALINE PHOSPHATASE INCREASED [None]
  - BLOOD POTASSIUM DECREASED [None]
  - C-REACTIVE PROTEIN INCREASED [None]
  - CHEMOTHERAPEUTIC DRUG LEVEL INCREASED [None]
  - DIALYSIS [None]
  - HAEMATOCRIT DECREASED [None]
  - HAEMOGLOBIN DECREASED [None]
  - HEPATIC FUNCTION ABNORMAL [None]
  - NEUTROPHIL COUNT DECREASED [None]
  - PLATELET COUNT DECREASED [None]
  - RED BLOOD CELL COUNT DECREASED [None]
  - RENAL FAILURE ACUTE [None]
  - WHITE BLOOD CELL COUNT DECREASED [None]
